FAERS Safety Report 8198190-0 (Version None)
Quarter: 2012Q1

REPORT INFORMATION
  Report Type: 
  Country: None (occurrence: None)
  Receive Date: 20120309
  Receipt Date: 20111212
  Transmission Date: 20120608
  Serious: No
  Sender: FDA-Public Use
  Company Number: US-AMGEN-USASP2011066033

PATIENT
  Age: 73 Year
  Sex: Female

DRUGS (3)
  1. TOPROL-XL [Concomitant]
  2. PROLIA [Suspect]
     Indication: OSTEOPOROSIS POSTMENOPAUSAL
     Dosage: UNK
     Dates: start: 20110101
  3. SYNTHROID [Concomitant]

REACTIONS (5)
  - ABDOMINAL DISCOMFORT [None]
  - GINGIVAL PAIN [None]
  - ENDODONTIC PROCEDURE [None]
  - GINGIVAL SWELLING [None]
  - IMPAIRED HEALING [None]
